FAERS Safety Report 5596333-6 (Version None)
Quarter: 2008Q1

REPORT INFORMATION
  Report Type: 
  Country: None (occurrence: None)
  Receive Date: 20080118
  Receipt Date: 20080111
  Transmission Date: 20080703
  Serious: Yes (Other)
  Sender: FDA-Public Use
  Company Number: US-MERCK-0711USA01361

PATIENT
  Age: 63 Year
  Sex: Female
  Weight: 89 kg

DRUGS (5)
  1. FOSAMAX [Suspect]
     Indication: OSTEOPOROSIS
     Route: 048
     Dates: start: 19970101, end: 20060101
  2. WARFARIN [Concomitant]
     Route: 065
  3. DIGITEK [Concomitant]
     Route: 065
  4. COZAAR [Concomitant]
     Route: 048
  5. LEVOXYL [Concomitant]
     Route: 065

REACTIONS (1)
  - ATRIAL FIBRILLATION [None]
